FAERS Safety Report 6975429-8 (Version None)
Quarter: 2010Q3

REPORT INFORMATION
  Report Type: 
  Country: None (occurrence: None)
  Receive Date: 20100910
  Receipt Date: 20090319
  Transmission Date: 20110219
  Serious: No
  Sender: FDA-Public Use
  Company Number: US-WYE-H08653209

PATIENT
  Age: 50 Year
  Sex: Female
  Weight: 59.02 kg

DRUGS (4)
  1. PRISTIQ [Suspect]
     Indication: DEPRESSION
     Route: 048
     Dates: start: 20090317, end: 20090317
  2. PRISTIQ [Suspect]
     Dosage: TOOK HALF A 50 MG TABLET
     Route: 048
     Dates: start: 20090318
  3. FUROSEMIDE [Concomitant]
  4. CLIMARA [Concomitant]

REACTIONS (10)
  - ABDOMINAL DISCOMFORT [None]
  - AGGRESSION [None]
  - ANXIETY [None]
  - DRUG ABUSE [None]
  - EYE PAIN [None]
  - HYPERACUSIS [None]
  - IRRITABILITY [None]
  - MYDRIASIS [None]
  - NAUSEA [None]
  - TACHYPHRENIA [None]
